FAERS Safety Report 8882697 (Version 1)
Quarter: 2012Q4

REPORT INFORMATION
  Report Type: 
  Country: CA (occurrence: CA)
  Receive Date: 20121104
  Receipt Date: 20121104
  Transmission Date: 20130627
  Serious: Yes (Death, Hospitalization, Other)
  Sender: FDA-Public Use
  Company Number: PHHO2005CA06649

PATIENT
  Sex: Female

DRUGS (7)
  1. SANDOSTATIN LAR (PATIENT BASIS) [Suspect]
     Indication: CARCINOID TUMOUR
     Dosage: 40 mg, every 4 weeks
     Dates: start: 20040220, end: 20051007
  2. SLOW-K [Concomitant]
  3. METOPROLOL TARTRATE [Concomitant]
  4. NORVASC [Concomitant]
  5. ALLOPURINOL [Concomitant]
  6. COVERSYL [Concomitant]
  7. POTASSIUM [Concomitant]

REACTIONS (7)
  - General physical health deterioration [Fatal]
  - Malignant neoplasm progression [Unknown]
  - Intestinal obstruction [Unknown]
  - Vomiting [Unknown]
  - Hypertension [Unknown]
  - Flushing [Unknown]
  - Nausea [Unknown]
